FAERS Safety Report 10530267 (Version 4)
Quarter: 2015Q1

REPORT INFORMATION
  Report Type: Spontaneous
  Country: US (occurrence: US)
  Receive Date: 20141021
  Receipt Date: 20150115
  Transmission Date: 20150720
  Serious: Yes (Other)
  Sender: FDA-Public Use
  Company Number: US-PFIZER INC-2014287704

PATIENT
  Age: 55 Year
  Sex: Female
  Weight: 89 kg

DRUGS (10)
  1. PRILOSEC [Concomitant]
     Active Substance: OMEPRAZOLE MAGNESIUM
     Dosage: 40 MG, 1X/DAY
  2. OMEPRAZOLE. [Concomitant]
     Active Substance: OMEPRAZOLE
     Dosage: UNK
  3. LYRICA [Suspect]
     Active Substance: PREGABALIN
     Indication: FIBROMYALGIA
     Dosage: 150 MG, 3X/DAY
     Route: 048
     Dates: start: 201302, end: 201406
  4. FLORAJEN PROBIOTICS [Concomitant]
     Dosage: 20 BILLION LIVE CULTURES PER CAPSULE, 2 CAPSULES 1X/DAY
  5. ALBUTEROL. [Concomitant]
     Active Substance: ALBUTEROL
     Dosage: UNK
  6. FISH OIL [Concomitant]
     Active Substance: FISH OIL
     Dosage: 1200 MG, TWO CAPSULES A DAY
  7. GABAPENTIN. [Concomitant]
     Active Substance: GABAPENTIN
     Indication: PAIN IN EXTREMITY
     Dosage: 300 MG, TAKES 1 IN MORNING, 1 IN AFTERNOON, 2 AT BEDTIME
     Dates: start: 201408
  8. NORCO [Concomitant]
     Active Substance: ACETAMINOPHEN\HYDROCODONE BITARTRATE
     Dosage: [HYDROCODONE BITARTRATE 5 MG]/[PARACETAMOL 325 MG] ONE DF EVERY 6 HOURS
  9. NEURONTIN [Concomitant]
     Active Substance: GABAPENTIN
     Dosage: 300 MG, 1 IN THE MORNING, 1 IN THE AFTERNOON, 2 AT BEDTIME
  10. CRANBERRY. [Concomitant]
     Active Substance: CRANBERRY
     Dosage: 450 MG, 2 PER DAY

REACTIONS (3)
  - Asthma [Recovering/Resolving]
  - Pain [Not Recovered/Not Resolved]
  - Mobility decreased [Not Recovered/Not Resolved]

NARRATIVE: CASE EVENT DATE: 201403
